FAERS Safety Report 25607456 (Version 4)
Quarter: 2025Q3

REPORT INFORMATION
  Report Type: Spontaneous
  Country: US (occurrence: US)
  Receive Date: 20250725
  Receipt Date: 20250829
  Transmission Date: 20251021
  Serious: Yes (Hospitalization)
  Sender: SANOFI AVENTIS
  Company Number: US-SA-2025SA212732

PATIENT
  Age: 8 Year
  Sex: Male

DRUGS (6)
  1. ELOCTATE [Suspect]
     Active Substance: EFMOROCTOCOG ALFA
     Indication: Factor VIII deficiency
     Route: 042
     Dates: start: 201702
  2. ELOCTATE [Suspect]
     Active Substance: EFMOROCTOCOG ALFA
     Indication: Factor VIII deficiency
     Route: 042
     Dates: start: 201702
  3. ELOCTATE [Suspect]
     Active Substance: EFMOROCTOCOG ALFA
     Route: 042
     Dates: start: 201702
  4. ELOCTATE [Suspect]
     Active Substance: EFMOROCTOCOG ALFA
     Route: 042
     Dates: start: 201702
  5. AMINOCAPROIC ACID [Concomitant]
     Active Substance: AMINOCAPROIC ACID
  6. HEMLIBRA [Concomitant]
     Active Substance: EMICIZUMAB-KXWH
     Indication: Prophylaxis

REACTIONS (4)
  - Haemorrhage [Recovered/Resolved]
  - Joint injury [Unknown]
  - Traumatic haemorrhage [Recovered/Resolved]
  - Haemorrhage [Unknown]

NARRATIVE: CASE EVENT DATE: 20250701
